FAERS Safety Report 4284009-7 (Version None)
Quarter: 2004Q1

REPORT INFORMATION
  Report Type: 
  Country: None (occurrence: None)
  Receive Date: 20040130
  Receipt Date: 20040112
  Transmission Date: 20041129
  Serious: Yes (Other)
  Sender: FDA-Public Use
  Company Number: US_040199916

PATIENT
  Age: 66 Year
  Sex: Male
  Weight: 85 kg

DRUGS (1)
  1. HUMULIN 70/30 [Suspect]
     Dosage: 54 U/DAY
     Dates: start: 19960101

REACTIONS (2)
  - KNEE ARTHROPLASTY [None]
  - SURGERY [None]
